FAERS Safety Report 14750255 (Version 2)
Quarter: 2018Q3

REPORT INFORMATION
  Report Type: Report from Study
  Country: IT (occurrence: IT)
  Receive Date: 20180412
  Receipt Date: 20180717
  Transmission Date: 20181010
  Serious: Yes (Life-Threatening)
  Sender: FDA-Public Use
  Company Number: IT-BRISTOL-MYERS SQUIBB COMPANY-BMS-2018-029943

PATIENT
  Age: 69 Year
  Sex: Male

DRUGS (1)
  1. WARFARIN SODIUM. [Suspect]
     Active Substance: WARFARIN SODIUM
     Indication: INFARCTION
     Dosage: 1 DF, DAILY
     Route: 048

REACTIONS (3)
  - Asthenia [Recovering/Resolving]
  - Vertigo [Recovering/Resolving]
  - Visual field defect [Recovering/Resolving]

NARRATIVE: CASE EVENT DATE: 20180321
